FAERS Safety Report 25063666 (Version 1)
Quarter: 2025Q1

REPORT INFORMATION
  Report Type: Spontaneous
  Country: JP (occurrence: JP)
  Receive Date: 20250311
  Receipt Date: 20250311
  Transmission Date: 20250409
  Serious: Yes (Other)
  Sender: ALEXION PHARMACEUTICALS
  Company Number: JP-ASTRAZENECA-250021735_063010_P_1

PATIENT
  Age: 72 Year

DRUGS (1)
  1. DAPAGLIFLOZIN [Suspect]
     Active Substance: DAPAGLIFLOZIN
     Indication: Type 2 diabetes mellitus

REACTIONS (4)
  - Gastric ulcer [Unknown]
  - Duodenal ulcer [Unknown]
  - Euglycaemic diabetic ketoacidosis [Recovering/Resolving]
  - Large intestine polyp [Unknown]
